FAERS Safety Report 17278485 (Version 16)
Quarter: 2024Q1

REPORT INFORMATION
  Report Type: Spontaneous
  Country: IN (occurrence: IN)
  Receive Date: 20200116
  Receipt Date: 20240301
  Transmission Date: 20240409
  Serious: Yes (Other)
  Sender: FDA-Public Use
  Company Number: IN-PFIZER INC-2020019644

PATIENT
  Age: 35 Year
  Sex: Male
  Weight: 63.5 kg

DRUGS (8)
  1. CRIZOTINIB [Suspect]
     Active Substance: CRIZOTINIB
     Indication: Lung adenocarcinoma
     Dosage: 250 MG, 2X/DAY
     Route: 048
     Dates: start: 20190430
  2. CRIZOTINIB [Suspect]
     Active Substance: CRIZOTINIB
     Dosage: 250 MG, 2X/DAY
     Route: 048
     Dates: start: 201905
  3. ONDANSETRON HYDROCHLORIDE [Concomitant]
     Active Substance: ONDANSETRON HYDROCHLORIDE
     Indication: Vomiting
     Dosage: 8 MG, AS NEEDED
  4. COREX T [Concomitant]
     Dosage: 2 TSF, AS NEEDED
  5. TRANEXAMIC ACID [Concomitant]
     Active Substance: TRANEXAMIC ACID
     Indication: Haemoptysis
     Dosage: 1000 MG
  6. ULTRACET [Concomitant]
     Active Substance: ACETAMINOPHEN\TRAMADOL HYDROCHLORIDE
     Indication: Pain
     Dosage: 1 DF, AS NEEDED
  7. MUCOBENZ [Concomitant]
     Dosage: UNK, 3X/DAY
  8. DUPHALAC [Concomitant]
     Active Substance: LACTULOSE
     Indication: Constipation
     Dosage: 15 ML, AT BED TIME

REACTIONS (9)
  - Electrocardiogram QT interval abnormal [Unknown]
  - Respiratory distress [Unknown]
  - Carcinoembryonic antigen increased [Not Recovered/Not Resolved]
  - Pulmonary fibrosis [Unknown]
  - Cough [Unknown]
  - Back pain [Unknown]
  - Neoplasm progression [Recovered/Resolved]
  - Constipation [Unknown]
  - Weight fluctuation [Unknown]

NARRATIVE: CASE EVENT DATE: 20190730
